FAERS Safety Report 7069866-3 (Version None)
Quarter: 2010Q4

REPORT INFORMATION
  Report Type: 
  Country: None (occurrence: None)
  Receive Date: 20101028
  Receipt Date: 20100608
  Transmission Date: 20110411
  Serious: No
  Sender: FDA-Public Use
  Company Number: US-WYE-H15746710

PATIENT
  Age: 89 Year
  Sex: Female
  Weight: 49.94 kg

DRUGS (3)
  1. ADVIL [Suspect]
     Indication: SKELETAL INJURY
     Route: 048
     Dates: start: 20100602, end: 20100605
  2. ADVIL [Suspect]
     Route: 048
     Dates: start: 20100607
  3. ATIVAN [Concomitant]

REACTIONS (1)
  - INSOMNIA [None]
